FAERS Safety Report 10696964 (Version 1)
Quarter: 2015Q1

REPORT INFORMATION
  Report Type: Spontaneous
  Country: JP (occurrence: JP)
  Receive Date: 20150108
  Receipt Date: 20150108
  Transmission Date: 20150721
  Serious: Yes (Death, Other)
  Sender: FDA-Public Use
  Company Number: JP-009507513-1501JPN001264

PATIENT
  Age: 82 Year
  Sex: Female
  Weight: 40 kg

DRUGS (2)
  1. CANCIDAS [Suspect]
     Active Substance: CASPOFUNGIN ACETATE
     Indication: FEBRILE NEUTROPENIA
     Dosage: 50 MG, ONCE DAILY
     Route: 041
     Dates: start: 20140718, end: 20140728
  2. CANCIDAS [Suspect]
     Active Substance: CASPOFUNGIN ACETATE
     Indication: FEBRILE NEUTROPENIA
     Dosage: 70 MG, ONCE DAILY
     Route: 041
     Dates: start: 20140717, end: 20140717

REACTIONS (1)
  - Acute myeloid leukaemia [Fatal]

NARRATIVE: CASE EVENT DATE: 20140828
